FAERS Safety Report 9061523 (Version 1)
Quarter: 2013Q1

REPORT INFORMATION
  Report Type: Spontaneous
  Country: US (occurrence: None)
  Receive Date: 20130208
  Receipt Date: 20130208
  Transmission Date: 20140127
  Serious: No
  Sender: FDA-Public Use
  Company Number: None

PATIENT
  Sex: Female

DRUGS (19)
  1. LAMOTRIGINE [Suspect]
     Indication: BIPOLAR DISORDER
     Route: 048
     Dates: start: 20130202, end: 20130204
  2. ALBUTROL INH [Concomitant]
  3. CARBAMAZEPINE [Concomitant]
  4. CLONAZEPAM [Concomitant]
  5. ESCITALOPRAM [Concomitant]
  6. GABAPENTIN [Concomitant]
  7. LORTAB [Concomitant]
  8. HYDROCORTISONE OINT [Concomitant]
  9. LANSOPRAZOLE [Concomitant]
  10. LOXAPANE [Concomitant]
  11. PRAZOCIN [Concomitant]
  12. PREDNISONE [Concomitant]
  13. APAP [Concomitant]
  14. DIPHENHYDRAMINE [Concomitant]
  15. IBUPROFEN [Concomitant]
  16. LOPRAMIDE [Concomitant]
  17. MILK OF MAGNESIA [Concomitant]
  18. MAG-AL-SUSP [Concomitant]
  19. ZOLPIDEM [Concomitant]

REACTIONS (2)
  - Rash [None]
  - Rash [None]
